FAERS Safety Report 6055755-X (Version None)
Quarter: 2009Q1

REPORT INFORMATION
  Report Type: 
  Country: None (occurrence: None)
  Receive Date: 20090126
  Receipt Date: 20090116
  Transmission Date: 20090719
  Serious: Yes (Other)
  Sender: FDA-Public Use
  Company Number: UKP09000012

PATIENT
  Age: 81 Year
  Sex: Female

DRUGS (1)
  1. ACTONEL [Suspect]
     Indication: OSTEOPOROSIS
     Dosage: 1 TABLET, 1/WEEK, ORAL
     Route: 048
     Dates: start: 20081009, end: 20081204

REACTIONS (4)
  - FINGER DEFORMITY [None]
  - MENTAL IMPAIRMENT [None]
  - PARAESTHESIA [None]
  - VISUAL ACUITY REDUCED [None]
